FAERS Safety Report 10227551 (Version 1)
Quarter: 2014Q2

REPORT INFORMATION
  Report Type: Spontaneous
  Country: US (occurrence: US)
  Receive Date: 20140610
  Receipt Date: 20140610
  Transmission Date: 20141212
  Serious: Yes (Death, Hospitalization, Other)
  Sender: FDA-Public Use
  Company Number: PHEH2014US011271

PATIENT
  Sex: Female
  Weight: 112.47 kg

DRUGS (31)
  1. TRILEPTAL [Suspect]
     Dosage: UNK UKN, UNK
  2. PENICILLIN G SODIUM [Suspect]
     Dosage: UNK UKN, UNK
  3. CHLORTALIDONE [Suspect]
     Dosage: UNK UKN, UNK
  4. PERCOCET [Suspect]
     Dosage: UNK UKN, UNK
  5. AMPYRA [Suspect]
     Indication: MULTIPLE SCLEROSIS
     Dosage: 10 MG, Q12H
     Route: 048
     Dates: start: 20110215, end: 201402
  6. ATIVAN [Concomitant]
     Dosage: 0.5 MG, TID
  7. BETASERON [Concomitant]
     Dosage: 0.3 UKN, QOD
     Route: 058
  8. TEGRETOL [Concomitant]
     Indication: GENERALISED TONIC-CLONIC SEIZURE
     Dosage: 200 MG, UNK
     Route: 048
     Dates: start: 20100930
  9. CRESTOR [Concomitant]
     Dosage: 5 MG, UNK (AT BED TIME)
     Route: 048
  10. GLUCOPHAGE [Concomitant]
     Dosage: 1000 MG, UNK
  11. GLUCOTROL [Concomitant]
     Dosage: 5 MG, UNK
  12. VITAMIN B12 [Concomitant]
     Dosage: 1000 UG/ML, UNK
     Route: 030
  13. VITAMIN D3 [Concomitant]
     Dosage: 4000 IU, UNK
  14. VOLTAREN ^NOVARTIS^ [Concomitant]
     Dosage: 1 %, UNK
     Route: 061
  15. ZESTRIL [Concomitant]
     Dosage: 40 MG, QD
     Route: 048
  16. ALLOPURINOL [Concomitant]
     Dosage: 300 MG, QD
     Route: 048
  17. ASPIRIN [Concomitant]
     Dosage: 81 MG, QD
     Route: 048
  18. GLIPIZIDE [Concomitant]
     Dosage: 6 MG, UNK
     Route: 048
  19. HYDROCHOROTHIAZIDE [Concomitant]
     Dosage: 25 MG, QD
     Route: 048
  20. ISRADIPINE [Concomitant]
     Dosage: 5 MG, UNK
     Route: 048
  21. LEVOTHYROXINE [Concomitant]
     Dosage: 25 UG, UNK
     Route: 048
  22. VITAMIN B6 [Concomitant]
     Dosage: 100 MG, QD
     Route: 048
  23. DITROPAN [Concomitant]
     Indication: BLADDER SPASM
     Dosage: 10 MG, QD
     Route: 048
  24. KLOR-CON [Concomitant]
     Dosage: 20 MG, QD
     Route: 048
  25. PYRIDIUM [Concomitant]
     Dosage: 100 MG, TID
     Route: 048
  26. BETAMETHASONE DIPROPIONATE [Concomitant]
     Dosage: 0.05 %, BID
     Route: 061
  27. CYANOCOBALAMIN [Concomitant]
     Dosage: 1000 UG/ML, UNK
     Route: 030
  28. DOXAZOSIN [Concomitant]
     Dosage: 2 MG, QD
     Route: 048
  29. METFORMIN [Concomitant]
     Dosage: 1000 MG, BID
     Route: 048
  30. TYLENOL EXTRA STRENGTH [Concomitant]
     Dosage: 500 MG, PRN
     Route: 048
  31. NEURONTIN [Concomitant]
     Dosage: UNK UKN, UNK

REACTIONS (40)
  - Gallbladder cancer metastatic [Fatal]
  - Ureteric obstruction [Unknown]
  - Anaemia [Unknown]
  - Areflexia [Unknown]
  - Diverticulum [Unknown]
  - Diabetic neuropathy [Unknown]
  - Eczema [Unknown]
  - Urinary incontinence [Unknown]
  - Pollakiuria [Unknown]
  - Trigeminal neuralgia [Unknown]
  - Carpal tunnel syndrome [Unknown]
  - Gout [Unknown]
  - Orthostatic hypotension [Unknown]
  - Mononeuropathy [Recovered/Resolved]
  - Obesity [Unknown]
  - Motor dysfunction [Unknown]
  - Flank pain [Unknown]
  - Mental status changes [Unknown]
  - Cholelithiasis [Unknown]
  - Dyslipidaemia [Unknown]
  - Hyperkeratosis [Unknown]
  - Hypoaesthesia [Unknown]
  - Sensory loss [Unknown]
  - Neuropathy peripheral [Unknown]
  - Blood creatinine increased [Unknown]
  - Drug hypersensitivity [Unknown]
  - Coordination abnormal [Unknown]
  - Paraesthesia [Unknown]
  - Multiple sclerosis relapse [Unknown]
  - Hypothyroidism [Unknown]
  - Alanine aminotransferase increased [Unknown]
  - Oedema [Unknown]
  - Hypertension [Unknown]
  - Arthralgia [Unknown]
  - Dizziness postural [Recovered/Resolved]
  - Abdominal pain [Unknown]
  - Fatigue [Unknown]
  - Asthenia [Unknown]
  - Weight decreased [Unknown]
  - Muscular weakness [Unknown]
